FAERS Safety Report 8710206 (Version 2)
Quarter: 2013Q1

REPORT INFORMATION
  Report Type: Spontaneous
  Country: PT (occurrence: PT)
  Receive Date: 20120806
  Receipt Date: 20130222
  Transmission Date: 20140127
  Serious: Yes (Other)
  Sender: FDA-Public Use
  Company Number: PT-009507513-2012SP010379

PATIENT
  Sex: Female

DRUGS (1)
  1. ZOELY [Suspect]
     Dosage: UNK UNK, UNKNOWN
     Route: 065
     Dates: start: 20120219

REACTIONS (6)
  - Abortion spontaneous [Recovered/Resolved]
  - Chest discomfort [Recovered/Resolved]
  - Headache [Recovered/Resolved]
  - Menstrual disorder [Recovered/Resolved]
  - Metrorrhagia [Recovered/Resolved]
  - Unintended pregnancy [Recovered/Resolved]
